FAERS Safety Report 6251088-7 (Version None)
Quarter: 2009Q2

REPORT INFORMATION
  Report Type: 
  Country: None (occurrence: None)
  Receive Date: 20090626
  Receipt Date: 20090623
  Transmission Date: 20091009
  Serious: Yes (Other)
  Sender: FDA-Public Use
  Company Number: 2009SP013831

PATIENT
  Age: 63 Year
  Sex: Male

DRUGS (2)
  1. DESLORATADINE [Suspect]
     Dates: start: 20080201, end: 20080501
  2. DESLORATADINE [Suspect]
     Dates: start: 20090201, end: 20090501

REACTIONS (3)
  - ARRHYTHMIA [None]
  - ATRIAL FLUTTER [None]
  - HYPERTENSION [None]
